FAERS Safety Report 4955666-4 (Version None)
Quarter: 2006Q1

REPORT INFORMATION
  Report Type: 
  Country: None (occurrence: None)
  Receive Date: 20060328
  Receipt Date: 20060221
  Transmission Date: 20060701
  Serious: Yes (Death)
  Sender: FDA-Public Use
  Company Number: US-BRISTOL-MYERS SQUIBB COMPANY-13290663

PATIENT
  Age: 79 Year
  Sex: Male

DRUGS (15)
  1. MEGACE [Suspect]
     Indication: DECREASED APPETITE
     Route: 048
     Dates: start: 20051006, end: 20051201
  2. CISPLATIN [Suspect]
     Indication: LUNG NEOPLASM MALIGNANT
     Dates: start: 20051205, end: 20051205
  3. TAXOTERE [Suspect]
     Indication: LUNG NEOPLASM MALIGNANT
     Dates: start: 20051205, end: 20051205
  4. ASPIRIN [Concomitant]
  5. THEOPHYLLINE [Concomitant]
  6. FLAGYL [Concomitant]
  7. PLAVIX [Concomitant]
  8. PROTONIX [Concomitant]
  9. CARDIZEM SR [Concomitant]
  10. PREDNISONE [Concomitant]
  11. INNOPRAN XL [Concomitant]
  12. LEXAPRO [Concomitant]
  13. IMDUR [Concomitant]
  14. ADVAIR DISKUS 100/50 [Concomitant]
     Route: 055
  15. SPIRIVA [Concomitant]
     Route: 055

REACTIONS (1)
  - DEATH [None]
